FAERS Safety Report 9004374 (Version 1)
Quarter: 2013Q1

REPORT INFORMATION
  Report Type: Spontaneous
  Country: US (occurrence: None)
  Receive Date: 20130104
  Receipt Date: 20130104
  Transmission Date: 20140127
  Serious: Yes (Other)
  Sender: FDA-Public Use
  Company Number: None

PATIENT
  Age: 42 Year
  Sex: Male
  Weight: 102.06 kg

DRUGS (1)
  1. CLARITHROMYCIN [Suspect]
     Indication: SINUSITIS
     Dosage: 500 MG 2 DAILY PO
     Route: 048
     Dates: start: 20121224, end: 20121229

REACTIONS (8)
  - Pruritus generalised [None]
  - Dysgeusia [None]
  - Muscle fatigue [None]
  - Pain [None]
  - Musculoskeletal stiffness [None]
  - Discomfort [None]
  - Product substitution issue [None]
  - Product quality issue [None]
